FAERS Safety Report 21060793 (Version 4)
Quarter: 2022Q3

REPORT INFORMATION
  Report Type: Spontaneous
  Country: US (occurrence: US)
  Receive Date: 20220709
  Receipt Date: 20220831
  Transmission Date: 20221027
  Serious: No
  Sender: FDA-Public Use
  Company Number: US-LUPIN PHARMACEUTICALS INC.-2022-09280

PATIENT
  Sex: Female
  Weight: 75.51 kg

DRUGS (2)
  1. TAVABOROLE [Suspect]
     Active Substance: TAVABOROLE
     Indication: Onychomycosis
     Dosage: 1 DROP, QD
     Route: 061
     Dates: start: 202202
  2. LOSARTAN [Concomitant]
     Active Substance: LOSARTAN
     Indication: Hypertension
     Dosage: 0.5 DOSAGE FORM (HALF TABLET)
     Route: 065

REACTIONS (1)
  - Onychoclasis [Not Recovered/Not Resolved]
